FAERS Safety Report 21473238 (Version 1)
Quarter: 2022Q4

REPORT INFORMATION
  Report Type: Spontaneous
  Country: US (occurrence: US)
  Receive Date: 20221018
  Receipt Date: 20221018
  Transmission Date: 20230113
  Serious: Yes (Life-Threatening, Hospitalization, Other)
  Sender: FDA-Public Use
  Company Number: US-INDIVIOR EUROPE LIMITED-INDV-136291-2022

PATIENT
  Age: 37 Year
  Sex: Male

DRUGS (1)
  1. BUPRENORPHINE\NALOXONE [Suspect]
     Active Substance: BUPRENORPHINE\NALOXONE
     Indication: Drug use disorder
     Dosage: UNK
     Route: 065

REACTIONS (5)
  - Cardiogenic shock [Recovered/Resolved]
  - Endocarditis [Recovered/Resolved]
  - Prosthetic valve endocarditis [Recovered/Resolved]
  - Prosthetic cardiac valve stenosis [Recovered/Resolved]
  - Drug abuse [Recovered/Resolved]
